FAERS Safety Report 4457419-2 (Version None)
Quarter: 2004Q3

REPORT INFORMATION
  Report Type: 
  Country: None (occurrence: None)
  Receive Date: 20040921
  Receipt Date: 20040903
  Transmission Date: 20050211
  Serious: Yes (Congenital Anomaly)
  Sender: FDA-Public Use
  Company Number: B0344464A

PATIENT
  Sex: Female

DRUGS (6)
  1. EPIVIR [Suspect]
     Dosage: TRANSPLACENTARY
     Route: 064
  2. STAVUDINE (STAVUDINE) [Suspect]
     Dosage: TRANSPLACENTARY
     Route: 064
  3. NEVIRAPINE (NEVIRAPINE) [Suspect]
     Dosage: TRANSPLACENTARY
     Route: 064
  4. ISONIAZID [Suspect]
     Dosage: TRANSPLACENTARY
     Route: 064
  5. ANTIBIOTICS [Concomitant]
  6. ZIDOVUDINE [Concomitant]

REACTIONS (11)
  - CONGENITAL NOSE MALFORMATION [None]
  - DRUG EXPOSURE DURING PREGNANCY [None]
  - FOETAL DISORDER [None]
  - HYDRONEPHROSIS [None]
  - INGUINAL HERNIA [None]
  - KIDNEY ENLARGEMENT [None]
  - NEONATAL RESPIRATORY ACIDOSIS [None]
  - NEONATAL RESPIRATORY FAILURE [None]
  - PNEUMOTHORAX [None]
  - URETERIC DILATATION [None]
  - VESICOURETERIC REFLUX [None]
